FAERS Safety Report 18595308 (Version 2)
Quarter: 2023Q1

REPORT INFORMATION
  Report Type: Report from Study
  Country: GB (occurrence: GB)
  Receive Date: 20201209
  Receipt Date: 20230217
  Transmission Date: 20230417
  Serious: Yes (Death)
  Sender: FDA-Public Use
  Company Number: GB-BOEHRINGERINGELHEIM-2018-BI-008375

PATIENT
  Age: 74 Year
  Sex: Female
  Weight: 60 kg

DRUGS (1)
  1. TENECTEPLASE [Suspect]
     Active Substance: TENECTEPLASE
     Indication: Ischaemic stroke
     Route: 042
     Dates: start: 20180212

REACTIONS (2)
  - Aortic dissection [Fatal]
  - Neurological symptom [Fatal]

NARRATIVE: CASE EVENT DATE: 20180212
